FAERS Safety Report 18212928 (Version 1)
Quarter: 2020Q3

REPORT INFORMATION
  Report Type: Spontaneous
  Country: JP (occurrence: JP)
  Receive Date: 20200831
  Receipt Date: 20200831
  Transmission Date: 20201103
  Serious: Yes (Hospitalization)
  Sender: FDA-Public Use
  Company Number: JP-PFIZER INC-2020332442

PATIENT

DRUGS (2)
  1. PEMBROLIZUMAB. [Suspect]
     Active Substance: PEMBROLIZUMAB
  2. INLYTA [Suspect]
     Active Substance: AXITINIB

REACTIONS (2)
  - C-reactive protein increased [Unknown]
  - Immune-mediated hepatic disorder [Recovering/Resolving]
